FAERS Safety Report 9013438 (Version 5)
Quarter: 2014Q3

REPORT INFORMATION
  Report Type: Spontaneous
  Country: US (occurrence: US)
  Receive Date: 20130114
  Receipt Date: 20140807
  Transmission Date: 20150326
  Serious: Yes (Hospitalization, Disabling, Other)
  Sender: FDA-Public Use
  Company Number: US-009507513-1301USA005211

PATIENT
  Sex: Female
  Weight: 83.9 kg

DRUGS (2)
  1. ULTRAM [Suspect]
     Active Substance: TRAMADOL HYDROCHLORIDE
     Indication: PAIN
     Dosage: UNK
     Dates: start: 20090830
  2. NUVARING [Suspect]
     Active Substance: ETHINYL ESTRADIOL\ETONOGESTREL
     Indication: CONTRACEPTION
     Dosage: UNK
     Route: 067
     Dates: start: 2005, end: 200908

REACTIONS (8)
  - Nausea [Recovering/Resolving]
  - Constipation [Recovering/Resolving]
  - Peripheral swelling [Unknown]
  - Pulmonary embolism [Recovering/Resolving]
  - Coagulopathy [Unknown]
  - Appendicectomy [Unknown]
  - Vomiting [Recovering/Resolving]
  - Pneumonia [Recovering/Resolving]

NARRATIVE: CASE EVENT DATE: 200908
